FAERS Safety Report 9920309 (Version 1)
Quarter: 2014Q1

REPORT INFORMATION
  Report Type: Spontaneous
  Country: MX (occurrence: MX)
  Receive Date: 20140224
  Receipt Date: 20140224
  Transmission Date: 20141002
  Serious: Yes (Other)
  Sender: FDA-Public Use
  Company Number: PHHY2014MX022484

PATIENT
  Age: 71 Year
  Sex: Female

DRUGS (8)
  1. DIOVAN [Suspect]
     Indication: HYPERTENSION
     Dosage: 4 DF(80MG), DAILY
     Route: 048
     Dates: start: 201308
  2. SERTRALINE [Concomitant]
     Dosage: 1 UKN(50MG), DAILY
  3. NIFEDIPINE [Concomitant]
     Dosage: 1 UKN(30MG), DAILY
  4. LIPITOR [Concomitant]
     Dosage: 1 UKN(20MG), DAILY
  5. LORAZEPAM [Concomitant]
     Dosage: 1 MG, UNK
  6. ASPIRINE PROTECT [Concomitant]
     Dosage: UNK UKN, UNK
  7. RANITIDINE [Concomitant]
     Dosage: 150 MG, UNK
  8. HYDROCHLOROTHIAZIDE [Concomitant]
     Indication: HYPERTENSION
     Dosage: 1 DF(25MG), DAILY
     Route: 048
     Dates: start: 201308

REACTIONS (7)
  - Ovarian neoplasm [Recovered/Resolved]
  - Dyspepsia [Not Recovered/Not Resolved]
  - Uterine disorder [Not Recovered/Not Resolved]
  - Colitis [Not Recovered/Not Resolved]
  - Gastritis [Not Recovered/Not Resolved]
  - Herpes virus infection [Unknown]
  - Breast disorder [Unknown]
